FAERS Safety Report 7551760-2 (Version None)
Quarter: 2011Q2

REPORT INFORMATION
  Report Type: 
  Country: None (occurrence: None)
  Receive Date: 20110616
  Receipt Date: 20110607
  Transmission Date: 20111010
  Serious: Yes (Disabling)
  Sender: FDA-Public Use
  Company Number: A0930613A

PATIENT
  Age: 28 Year
  Sex: Female

DRUGS (2)
  1. LEXAPRO [Concomitant]
  2. LAMICTAL [Suspect]
     Indication: BIPOLAR DISORDER
     Dosage: 25MG PER DAY
     Route: 048
     Dates: start: 20100101

REACTIONS (1)
  - DRUG SCREEN POSITIVE [None]
